FAERS Safety Report 10016418 (Version 1)
Quarter: 2014Q1

REPORT INFORMATION
  Report Type: Spontaneous
  Country: IN (occurrence: IN)
  Receive Date: 20140317
  Receipt Date: 20140317
  Transmission Date: 20141002
  Serious: Yes (Hospitalization)
  Sender: FDA-Public Use
  Company Number: PHHY2014IN030647

PATIENT
  Age: 40 Year
  Sex: Female

DRUGS (1)
  1. ISONIAZID [Suspect]
     Indication: PULMONARY TUBERCULOSIS

REACTIONS (11)
  - Hepatosplenomegaly [Recovered/Resolved]
  - Emotional distress [Recovered/Resolved]
  - Renal failure chronic [Unknown]
  - Renal function test abnormal [Unknown]
  - Liver function test abnormal [Unknown]
  - Neurotoxicity [Recovered/Resolved]
  - Encephalitis [Recovered/Resolved]
  - Dizziness [Recovered/Resolved]
  - Dysarthria [Recovered/Resolved]
  - Dizziness postural [Recovered/Resolved]
  - Pyrexia [Recovered/Resolved]
